FAERS Safety Report 20167008 (Version 1)
Quarter: 2021Q4

REPORT INFORMATION
  Report Type: Report from Study
  Country: FR (occurrence: FR)
  Receive Date: 20211209
  Receipt Date: 20211209
  Transmission Date: 20220303
  Serious: Yes (Hospitalization)
  Sender: FDA-Public Use
  Company Number: FR-SERVIER-S21001534

PATIENT

DRUGS (8)
  1. PEGASPARGASE [Suspect]
     Active Substance: PEGASPARGASE
     Indication: Acute lymphocytic leukaemia
     Dosage: 2800 IU, QD ON D15 AND D43
     Route: 042
     Dates: start: 20201012, end: 20201118
  2. CYCLOPHOSPHAMIDE [Suspect]
     Active Substance: CYCLOPHOSPHAMIDE
     Indication: Acute lymphocytic leukaemia
     Dosage: 1120 MG, ON D1 AND D29
     Route: 042
     Dates: start: 20200928, end: 20201104
  3. CYTARABINE [Suspect]
     Active Substance: CYTARABINE
     Indication: Acute lymphocytic leukaemia
     Dosage: 30 MG, D3, D13, D31, D46
     Route: 037
     Dates: start: 20200830, end: 20201121
  4. CYTARABINE [Suspect]
     Active Substance: CYTARABINE
     Dosage: 84 MG ON D3 TO D6, AND D10 TO D13
     Route: 042
     Dates: start: 20200930, end: 20201116
  5. MERCAPTOPURINE [Suspect]
     Active Substance: MERCAPTOPURINE
     Indication: Acute lymphocytic leukaemia
     Dosage: 70 MG ON D1 TO D14, AND D29 TO D42
     Route: 048
     Dates: start: 20200928, end: 20201117
  6. METHOTREXATE [Suspect]
     Active Substance: METHOTREXATE
     Indication: Acute lymphocytic leukaemia
     Dosage: 12 MG ON D3, D13, D31, AND D46
     Route: 037
     Dates: start: 20200830, end: 20201121
  7. HYDROCORTISONE SODIUM SUCCINATE [Suspect]
     Active Substance: HYDROCORTISONE SODIUM SUCCINATE
     Indication: Acute lymphocytic leukaemia
     Dosage: 15 MG ON D3, D13, D31, AND D46
     Route: 037
     Dates: start: 20200830, end: 20201121
  8. VINCRISTINE SULFATE [Concomitant]
     Active Substance: VINCRISTINE SULFATE
     Indication: Acute lymphocytic leukaemia
     Dosage: 1.7 MG ON D15, D22, D43, AND D50
     Route: 042
     Dates: start: 20201012, end: 20201125

REACTIONS (1)
  - Febrile bone marrow aplasia [Recovered/Resolved]

NARRATIVE: CASE EVENT DATE: 20201129
